FAERS Safety Report 5427420-0 (Version None)
Quarter: 2007Q3

REPORT INFORMATION
  Report Type: 
  Country: None (occurrence: None)
  Receive Date: 20070824
  Receipt Date: 20070824
  Transmission Date: 20080115
  Serious: Yes (Life-Threatening, Hospitalization)
  Sender: FDA-Public Use
  Company Number: None

PATIENT
  Age: 44 Year
  Sex: Female
  Weight: 68.0396 kg

DRUGS (1)
  1. TOPAMAX [Suspect]
     Indication: MIGRAINE
     Dosage: SEE TITRATION SCHED PO
     Route: 048
     Dates: start: 20070808, end: 20070818

REACTIONS (20)
  - AGITATION [None]
  - ANXIETY [None]
  - APHASIA [None]
  - ARRHYTHMIA [None]
  - ATONIC SEIZURES [None]
  - BURNING SENSATION [None]
  - DYSGEUSIA [None]
  - FEELING ABNORMAL [None]
  - HYPERTENSION [None]
  - HYPOTONIA [None]
  - MANIA [None]
  - MIDDLE INSOMNIA [None]
  - PARALYSIS [None]
  - PARANOIA [None]
  - PARTIAL SEIZURES [None]
  - POLLAKIURIA [None]
  - PRURITUS [None]
  - THIRST [None]
  - TONGUE DISORDER [None]
  - TREMOR [None]
